FAERS Safety Report 21469556 (Version 3)
Quarter: 2022Q4

REPORT INFORMATION
  Report Type: Spontaneous
  Country: US (occurrence: None)
  Receive Date: 20221018
  Receipt Date: 20221024
  Transmission Date: 20230112
  Serious: Yes (Other)
  Sender: FDA-Public Use
  Company Number: US-ROCHE-3200925

PATIENT
  Age: 20 Year
  Sex: Male
  Weight: 77.180 kg

DRUGS (2)
  1. RITUXAN [Suspect]
     Active Substance: RITUXIMAB
     Indication: Neuromyelitis optica spectrum disorder
     Dosage: NO
     Route: 041
     Dates: start: 202103, end: 202109
  2. RITUXAN [Suspect]
     Active Substance: RITUXIMAB
     Indication: Myelin oligodendrocyte glycoprotein antibody-associated disease
     Route: 041
     Dates: start: 202109, end: 202112

REACTIONS (7)
  - JC virus infection [Unknown]
  - Off label use [Unknown]
  - Paraesthesia [Not Recovered/Not Resolved]
  - Burning sensation [Not Recovered/Not Resolved]
  - Headache [Unknown]
  - Spinal cord neoplasm [Unknown]
  - Weight decreased [Unknown]

NARRATIVE: CASE EVENT DATE: 20210301
